FAERS Safety Report 23692363 (Version 2)
Quarter: 2025Q4

REPORT INFORMATION
  Report Type: Spontaneous
  Country: JP (occurrence: JP)
  Receive Date: 20240401
  Receipt Date: 20251216
  Transmission Date: 20260117
  Serious: Yes (Other)
  Sender: OTSUKA
  Company Number: JP-OTSUKA-2024_008324AA

PATIENT
  Age: 41 Year
  Sex: Female
  Weight: 55.5 kg

DRUGS (3)
  1. BUSULFAN [Suspect]
     Active Substance: BUSULFAN
     Indication: Unrelated donor bone marrow transplantation therapy
     Dosage: 3.2 MG/KG (DAY-5 TO DAY-2)
     Route: 065
  2. FLUDARABINE PHOSPHATE [Suspect]
     Active Substance: FLUDARABINE PHOSPHATE
     Indication: Unrelated donor bone marrow transplantation therapy
     Dosage: 30 MG/M2 (DAY-6 TO DAY-2)
     Route: 065
  3. LAPINE T-LYMPHOCYTE IMMUNE GLOBULIN [Suspect]
     Active Substance: LAPINE T-LYMPHOCYTE IMMUNE GLOBULIN
     Indication: Unrelated donor bone marrow transplantation therapy
     Dosage: 1.25 MG/KG (DAY-4, DAY-3)
     Route: 065

REACTIONS (2)
  - Neuropathy peripheral [Recovering/Resolving]
  - Generalised oedema [Unknown]
